FAERS Safety Report 7640347-9 (Version None)
Quarter: 2011Q3

REPORT INFORMATION
  Report Type: 
  Country: None (occurrence: None)
  Receive Date: 20110728
  Receipt Date: 20110719
  Transmission Date: 20111222
  Serious: Yes (Other)
  Sender: FDA-Public Use
  Company Number: US-BAYER-2011-022452

PATIENT
  Age: 42 Year
  Sex: Female
  Weight: 63 kg

DRUGS (1)
  1. YASMIN [Suspect]
     Indication: CONTRACEPTION
     Dosage: UNK
     Dates: start: 20010901, end: 20031101

REACTIONS (2)
  - ISCHAEMIC STROKE [None]
  - PAIN [None]
